FAERS Safety Report 4467926-4 (Version None)
Quarter: 2004Q4

REPORT INFORMATION
  Report Type: 
  Country: None (occurrence: None)
  Receive Date: 20041004
  Receipt Date: 20040922
  Transmission Date: 20050328
  Serious: Yes (Death, Hospitalization)
  Sender: FDA-Public Use
  Company Number: STA-AE-04-MTX-445

PATIENT
  Age: 70 Year
  Sex: Female

DRUGS (8)
  1. RHEUMATREX [Suspect]
     Indication: RHEUMATOID ARTHRITIS
     Dosage: 4 MG 1X PER 1 WK, ORAL
     Route: 048
     Dates: start: 20031210, end: 20040114
  2. RHEUMATREX [Suspect]
     Indication: RHEUMATOID ARTHRITIS
     Dosage: 6 MG 1X PER 1 WK, ORAL
     Route: 047
     Dates: start: 20040115, end: 20040708
  3. PREDNISOLONE [Concomitant]
  4. MOBIC [Concomitant]
  5. ONE-ALPHA (ALFACALCIDOL) [Concomitant]
  6. TAGAMET [Concomitant]
  7. AMLODIPINE BESYLATE [Concomitant]
  8. MEVALOTIN (PRAVASTATIN) [Concomitant]

REACTIONS (7)
  - ANOREXIA [None]
  - HYPOXIA [None]
  - MULTI-ORGAN FAILURE [None]
  - MYELODYSPLASTIC SYNDROME [None]
  - PANCYTOPENIA [None]
  - PNEUMOCYSTIS CARINII PNEUMONIA [None]
  - STOMATITIS [None]
